FAERS Safety Report 19129395 (Version 1)
Quarter: 2021Q2

REPORT INFORMATION
  Report Type: Spontaneous
  Country: US (occurrence: US)
  Receive Date: 20210413
  Receipt Date: 20210413
  Transmission Date: 20210717
  Serious: No
  Sender: FDA-Public Use
  Company Number: US-PFIZER INC-2021354297

PATIENT
  Age: 62 Year
  Sex: Female

DRUGS (3)
  1. XELJANZ [Suspect]
     Active Substance: TOFACITINIB CITRATE
     Indication: COLITIS ULCERATIVE
     Dosage: 20 MG, 1X/DAY
  2. TYLENOL [Suspect]
     Active Substance: ACETAMINOPHEN
     Dosage: UNK
  3. MESALAMINE. [Suspect]
     Active Substance: MESALAMINE
     Dosage: UNK

REACTIONS (2)
  - Dizziness [Unknown]
  - Intentional product use issue [Unknown]
